FAERS Safety Report 8142377-X (Version None)
Quarter: 2012Q1

REPORT INFORMATION
  Report Type: 
  Country: None (occurrence: None)
  Receive Date: 20120103
  Receipt Date: 20110913
  Transmission Date: 20120608
  Serious: No
  Sender: FDA-Public Use
  Company Number: AE-2011-001262

PATIENT
  Age: 57 Year
  Sex: Female

DRUGS (6)
  1. INCIVEK [Suspect]
     Dates: start: 20110101
  2. FLUOXETINE [Concomitant]
  3. LORAZEPAM [Concomitant]
  4. RIBAVIRIN [Concomitant]
  5. PEGASYS [Concomitant]
  6. LT4 (LEVOTHYROXINE) [Concomitant]

REACTIONS (1)
  - HAEMOGLOBIN DECREASED [None]
